FAERS Safety Report 20736639 (Version 1)
Quarter: 2022Q2

REPORT INFORMATION
  Report Type: Spontaneous
  Country: US (occurrence: None)
  Receive Date: 20220421
  Receipt Date: 20220421
  Transmission Date: 20220721
  Serious: Yes (Life-Threatening, Hospitalization, Other)
  Sender: FDA-Public Use
  Company Number: 2022A134962

PATIENT
  Age: 55 Year
  Sex: Female

DRUGS (22)
  1. CRESTOR [Interacting]
     Active Substance: ROSUVASTATIN CALCIUM
     Indication: Blood cholesterol increased
     Route: 065
  2. TERIFLUNOMIDE [Interacting]
     Active Substance: TERIFLUNOMIDE
     Indication: Multiple sclerosis
     Dosage: TOTAL DOSAGE-11,634.000000 MG
     Route: 065
     Dates: start: 20150902, end: 20171231
  3. ENTRESTO [Suspect]
     Active Substance: SACUBITRIL\VALSARTAN
     Indication: Myocardial infarction
     Route: 065
  4. ENTRESTO [Suspect]
     Active Substance: SACUBITRIL\VALSARTAN
     Indication: Cardiac failure
     Route: 065
  5. METOPROLOL [Suspect]
     Active Substance: METOPROLOL
     Route: 065
  6. METOPROLOL [Suspect]
     Active Substance: METOPROLOL
     Indication: Myocardial infarction
     Route: 065
  7. METOPROLOL [Suspect]
     Active Substance: METOPROLOL
     Indication: Cardiac failure
     Route: 065
  8. SINGULAIR [Suspect]
     Active Substance: MONTELUKAST SODIUM
     Indication: Myocardial infarction
     Route: 065
  9. SINGULAIR [Suspect]
     Active Substance: MONTELUKAST SODIUM
     Indication: Cardiac failure
     Route: 065
  10. NITROGLYCERIN [Suspect]
     Active Substance: NITROGLYCERIN
     Indication: Myocardial infarction
     Route: 065
  11. NITROGLYCERIN [Suspect]
     Active Substance: NITROGLYCERIN
     Indication: Cardiac failure
     Route: 065
  12. TORSEMIDE [Suspect]
     Active Substance: TORSEMIDE
     Indication: Myocardial infarction
     Route: 065
  13. TORSEMIDE [Suspect]
     Active Substance: TORSEMIDE
     Indication: Cardiac failure
     Route: 065
  14. SPIRONOLACTONE [Suspect]
     Active Substance: SPIRONOLACTONE
     Indication: Myocardial infarction
     Route: 065
  15. SPIRONOLACTONE [Suspect]
     Active Substance: SPIRONOLACTONE
     Indication: Cardiac failure
     Route: 065
  16. POTASSIUM [Suspect]
     Active Substance: POTASSIUM
     Indication: Myocardial infarction
     Route: 065
  17. POTASSIUM [Suspect]
     Active Substance: POTASSIUM
     Indication: Cardiac failure
     Route: 065
  18. ASPIRIN [Suspect]
     Active Substance: ASPIRIN
     Indication: Myocardial infarction
     Route: 065
  19. ASPIRIN [Suspect]
     Active Substance: ASPIRIN
     Indication: Cardiac failure
     Route: 065
  20. ATROVENT [Concomitant]
     Active Substance: IPRATROPIUM BROMIDE
     Route: 065
  21. VITAMIN B12 [Concomitant]
     Active Substance: CYANOCOBALAMIN
     Route: 065
  22. AVONEX [Concomitant]
     Active Substance: INTERFERON BETA-1A
     Route: 065
     Dates: start: 1998, end: 20150921

REACTIONS (6)
  - Drug interaction [Unknown]
  - Cardiac failure [Unknown]
  - Myocardial infarction [Unknown]
  - Fatigue [Unknown]
  - Alopecia [Unknown]
  - Blood cholesterol increased [Unknown]
